FAERS Safety Report 15563026 (Version 3)
Quarter: 2020Q4

REPORT INFORMATION
  Report Type: Spontaneous
  Country: AU (occurrence: AU)
  Receive Date: 20181029
  Receipt Date: 20201110
  Transmission Date: 20210113
  Serious: Yes (Death)
  Sender: FDA-Public Use
  Company Number: AU-009507513-1810AUS010981

PATIENT
  Age: 38 Year
  Sex: Male

DRUGS (11)
  1. AVANZA [Suspect]
     Active Substance: MIRTAZAPINE
     Indication: ANXIETY
  2. SEROQUEL [Suspect]
     Active Substance: QUETIAPINE FUMARATE
     Indication: ANXIETY
  3. BUPRENORPHINE HYDROCHLORIDE. [Suspect]
     Active Substance: BUPRENORPHINE HYDROCHLORIDE
     Indication: DRUG DEPENDENCE
     Dosage: 4 MILLIGRAM
     Route: 060
     Dates: start: 20150403, end: 20150403
  4. SEROQUEL [Suspect]
     Active Substance: QUETIAPINE FUMARATE
     Indication: DEPRESSION
  5. DIAZEPAM. [Suspect]
     Active Substance: DIAZEPAM
     Indication: DRUG DEPENDENCE
  6. BUPRENORPHINE HYDROCHLORIDE. [Suspect]
     Active Substance: BUPRENORPHINE HYDROCHLORIDE
     Indication: ALCOHOL WITHDRAWAL SYNDROME
     Dosage: 8 MILLIGRAM
     Route: 060
     Dates: start: 20150403, end: 20150403
  7. AVANZA [Suspect]
     Active Substance: MIRTAZAPINE
     Indication: EMOTIONAL DISTRESS
     Dosage: UNK
     Route: 048
  8. AVANZA [Suspect]
     Active Substance: MIRTAZAPINE
     Indication: DEPRESSION
  9. BUPRENORPHINE HYDROCHLORIDE. [Suspect]
     Active Substance: BUPRENORPHINE HYDROCHLORIDE
     Dosage: 8 MILLIGRAM
     Route: 060
     Dates: start: 20150404, end: 20150404
  10. DIAZEPAM. [Suspect]
     Active Substance: DIAZEPAM
     Indication: ALCOHOL WITHDRAWAL SYNDROME
     Dosage: UNK
     Dates: start: 20150402, end: 20150404
  11. SEROQUEL [Suspect]
     Active Substance: QUETIAPINE FUMARATE
     Indication: EMOTIONAL DISTRESS
     Dosage: UNK
     Route: 048

REACTIONS (5)
  - Respiratory depression [Fatal]
  - Miosis [Fatal]
  - Somnolence [Fatal]
  - Prescribed overdose [Fatal]
  - Toxicity to various agents [Fatal]

NARRATIVE: CASE EVENT DATE: 20150403
